FAERS Safety Report 4341124-7 (Version None)
Quarter: 2004Q2

REPORT INFORMATION
  Report Type: 
  Country: None (occurrence: None)
  Receive Date: 20040413
  Receipt Date: 20040402
  Transmission Date: 20050107
  Serious: Yes (Hospitalization)
  Sender: FDA-Public Use
  Company Number: JP-SHR-04-023645

PATIENT
  Age: 90 Year
  Sex: Male

DRUGS (1)
  1. FERIDEX I.V. [Suspect]
     Indication: NUCLEAR MAGNETIC RESONANCE IMAGING
     Dosage: 5 M1, DOSE, INTRAVENOUS
     Route: 042
     Dates: start: 20040213, end: 20040213

REACTIONS (7)
  - ATRIOVENTRICULAR BLOCK [None]
  - BACK PAIN [None]
  - CHEST PAIN [None]
  - CONVERSION DISORDER [None]
  - ELECTROCARDIOGRAM ABNORMAL [None]
  - INCOHERENT [None]
  - INFUSION RELATED REACTION [None]
